FAERS Safety Report 8984900 (Version 2)
Quarter: 2013Q3

REPORT INFORMATION
  Report Type: Spontaneous
  Country: US (occurrence: US)
  Receive Date: 20121226
  Receipt Date: 20130701
  Transmission Date: 20140515
  Serious: No
  Sender: FDA-Public Use
  Company Number: US-PFIZER INC-2012323451

PATIENT
  Age: 34 Year
  Sex: Male

DRUGS (10)
  1. MORPHINE SULFATE [Suspect]
     Dosage: UNK
  2. IODINE [Suspect]
     Dosage: UNK
  3. NOVOLOG MIX 70/30 [Suspect]
     Dosage: UNK
  4. CLONIDINE [Suspect]
     Dosage: 0.2 MG, 3X/DAY
  5. COREG [Suspect]
     Dosage: 25 MG, 2X/DAY
  6. PLAVIX [Suspect]
     Dosage: 75 MG, UNK
  7. HYDRALAZINE [Suspect]
     Dosage: 100 MG, 2X/DAY
  8. BUMEX [Suspect]
     Dosage: 2 MG, 1X/DAY
  9. ZAROXOLYN [Suspect]
     Dosage: 10 MG, UNK
  10. VITAMIN D [Suspect]
     Dosage: 3000 IU, UNK

REACTIONS (1)
  - Drug hypersensitivity [Unknown]
